FAERS Safety Report 4892699-0 (Version None)
Quarter: 2006Q1

REPORT INFORMATION
  Report Type: 
  Country: None (occurrence: None)
  Receive Date: 20060125
  Receipt Date: 20060125
  Transmission Date: 20060701
  Serious: Yes (Hospitalization)
  Sender: FDA-Public Use
  Company Number: None

PATIENT
  Sex: Female

DRUGS (14)
  1. CLOPIDOGREL [Suspect]
     Indication: CORONARY ARTERY DISEASE
     Dosage: 75MG, DAILY ,ORAL
     Route: 048
     Dates: start: 20050301, end: 20050916
  2. CLOPIDOGREL [Suspect]
     Indication: STENT PLACEMENT
     Dosage: 75MG, DAILY ,ORAL
     Route: 048
     Dates: start: 20050301, end: 20050916
  3. ASPIRIN [Concomitant]
  4. LISINOPRIL [Concomitant]
  5. NIFEDIPINE [Concomitant]
  6. IMDUR [Concomitant]
  7. FESO4 [Concomitant]
  8. FUROSEMIDE [Concomitant]
  9. PRAVASTATIN [Concomitant]
  10. FENOFIBRATE [Concomitant]
  11. CHOLCHICINE [Concomitant]
  12. METOPROLOL [Concomitant]
  13. COLACE [Concomitant]
  14. ATROVENT/ALBUTEROL [Concomitant]

REACTIONS (2)
  - RECTAL HAEMORRHAGE [None]
  - THROMBOSIS [None]
